FAERS Safety Report 24343244 (Version 1)
Quarter: 2024Q3

REPORT INFORMATION
  Report Type: Spontaneous
  Country: US (occurrence: US)
  Receive Date: 20240920
  Receipt Date: 20240920
  Transmission Date: 20241017
  Serious: Yes (Hospitalization, Other)
  Sender: SANOFI AVENTIS
  Company Number: US-SANOFI-02225518

PATIENT
  Age: 9 Year
  Sex: Female

DRUGS (2)
  1. DUPIXENT [Suspect]
     Active Substance: DUPILUMAB
     Indication: Dermatitis atopic
     Dosage: UNK
     Route: 065
  2. TRALOKINUMAB [Suspect]
     Active Substance: TRALOKINUMAB
     Dosage: UNK

REACTIONS (4)
  - Splenic abscess [Unknown]
  - Liver abscess [Unknown]
  - Pyrexia [Unknown]
  - Splenic lesion [Unknown]
